FAERS Safety Report 4654611-9 (Version None)
Quarter: 2005Q2

REPORT INFORMATION
  Report Type: 
  Country: None (occurrence: None)
  Receive Date: 20050503
  Receipt Date: 20050503
  Transmission Date: 20051028
  Serious: No
  Sender: FDA-Public Use
  Company Number: None

PATIENT
  Age: 77 Year
  Sex: Female
  Weight: 61 kg

DRUGS (7)
  1. DROTRECOGIN ALFA LILLY [Suspect]
     Indication: BACTERIAL SEPSIS
     Dosage: 24 MCG/KG/HR       INTRAVENOU
     Route: 042
     Dates: start: 20050430, end: 20050501
  2. HEPARIN [Concomitant]
  3. ACETAMINOPHEN [Concomitant]
  4. DUONEB [Concomitant]
  5. CIPRO [Concomitant]
  6. CALCIUM GLUCONATE [Concomitant]
  7. HYDROCORTISONE [Concomitant]

REACTIONS (1)
  - GASTROINTESTINAL HAEMORRHAGE [None]
